FAERS Safety Report 6534936-2 (Version None)
Quarter: 2010Q1

REPORT INFORMATION
  Report Type: 
  Country: None (occurrence: None)
  Receive Date: 20100112
  Receipt Date: 20100106
  Transmission Date: 20100710
  Serious: Yes (Death)
  Sender: FDA-Public Use
  Company Number: JP-BAXTER-2009BH018130

PATIENT
  Age: 81 Year
  Sex: Male

DRUGS (3)
  1. ENDOXAN BAXTER [Suspect]
     Indication: ACQUIRED HAEMOPHILIA
     Route: 065
     Dates: start: 20070101, end: 20070101
  2. PREDONINE [Suspect]
     Indication: ACQUIRED HAEMOPHILIA
     Route: 065
     Dates: start: 20070101
  3. FEIBA [Concomitant]
     Indication: ACQUIRED HAEMOPHILIA
     Route: 065
     Dates: start: 20070101, end: 20070101

REACTIONS (4)
  - ASPIRATION [None]
  - GASTROINTESTINAL HAEMORRHAGE [None]
  - HAEMATEMESIS [None]
  - SUDDEN DEATH [None]
